FAERS Safety Report 7387399-1 (Version None)
Quarter: 2011Q1

REPORT INFORMATION
  Report Type: 
  Country: None (occurrence: None)
  Receive Date: 20110331
  Receipt Date: 20110322
  Transmission Date: 20110831
  Serious: Yes (Hospitalization, Other)
  Sender: FDA-Public Use
  Company Number: US-ASTRAZENECA-2011SE16660

PATIENT
  Age: 83 Year

DRUGS (17)
  1. NADOLOL [Concomitant]
     Indication: HYPERTENSION
     Dosage: 1 TAB AM AND PM
  2. AMLODIPINE [Concomitant]
     Indication: HYPERTENSION
  3. HYDROCORTISONE [Concomitant]
     Indication: ANORECTAL DISORDER
     Dosage: SUPOSITORY, AS NEEDED
  4. ALPRAZOLAM [Concomitant]
     Indication: ANXIETY
  5. SULINDAC [Concomitant]
     Indication: PAIN
  6. NEXIUM [Suspect]
     Indication: HIATUS HERNIA
     Route: 048
  7. LEXXEL [Suspect]
     Indication: HYPERTENSION
  8. NADOLOL [Concomitant]
     Indication: CARDIAC DISORDER
     Dosage: 1 TAB AM AND PM
  9. ACTOS [Concomitant]
     Indication: DIABETES MELLITUS
  10. SERTRALINE HYDROCHLORIDE [Concomitant]
     Indication: ANTIDEPRESSANT THERAPY
  11. FAMOTIDINE [Concomitant]
     Indication: HIATUS HERNIA
  12. PLAVIX [Concomitant]
     Indication: CARDIAC DISORDER
  13. CL ER MICRO [Concomitant]
     Indication: BLOOD POTASSIUM ABNORMAL
     Dosage: 1.5 PER DAY AM AND PM
  14. AMBIEN CR [Concomitant]
     Indication: SLEEP DISORDER
  15. THYROXINE [Concomitant]
  16. FUROSEMIDE [Concomitant]
  17. VESICARE [Concomitant]
     Indication: GALLBLADDER DISORDER

REACTIONS (19)
  - CARPAL TUNNEL SYNDROME [None]
  - HYPERTENSION [None]
  - GASTRITIS [None]
  - THYROID DISORDER [None]
  - TYPE 2 DIABETES MELLITUS [None]
  - DIVERTICULITIS [None]
  - MITRAL VALVE PROLAPSE [None]
  - SPINAL FRACTURE [None]
  - HYSTERECTOMY [None]
  - HIP ARTHROPLASTY [None]
  - CHOLELITHIASIS [None]
  - BLEPHARITIS [None]
  - TRANSIENT ISCHAEMIC ATTACK [None]
  - STENT PLACEMENT [None]
  - COUGH [None]
  - CATARACT [None]
  - RENAL CYST [None]
  - DRY EYE [None]
  - HIATUS HERNIA [None]
